FAERS Safety Report 19849737 (Version 3)
Quarter: 2021Q4

REPORT INFORMATION
  Report Type: Report from Study
  Country: US (occurrence: US)
  Receive Date: 20210917
  Receipt Date: 20211005
  Transmission Date: 20220303
  Serious: Yes (Other)
  Sender: FDA-Public Use
  Company Number: NVSC2021US206181

PATIENT
  Sex: Male

DRUGS (2)
  1. GLATOPA [Suspect]
     Active Substance: GLATIRAMER ACETATE
     Indication: Multiple sclerosis
     Dosage: 40 MG
     Route: 058
  2. GLATOPA [Suspect]
     Active Substance: GLATIRAMER ACETATE
     Dosage: UNK
     Route: 058

REACTIONS (10)
  - Multiple sclerosis [Unknown]
  - Pain [Unknown]
  - Hypoaesthesia [Unknown]
  - Burning sensation [Unknown]
  - Intervertebral disc disorder [Unknown]
  - Flushing [Unknown]
  - Dyspnoea [Unknown]
  - Swelling [Unknown]
  - Pyrexia [Unknown]
  - Erythema [Unknown]
